FAERS Safety Report 19194353 (Version 3)
Quarter: 2021Q2

REPORT INFORMATION
  Report Type: Spontaneous
  Country: DE (occurrence: DE)
  Receive Date: 20210429
  Receipt Date: 20210531
  Transmission Date: 20210717
  Serious: Yes (Hospitalization, Other)
  Sender: FDA-Public Use
  Company Number: DE-SA-2021SA141385

PATIENT
  Age: 54 Year
  Sex: Male
  Weight: 91 kg

DRUGS (3)
  1. DUPIXENT [Suspect]
     Active Substance: DUPILUMAB
     Indication: ASTHMA
     Dosage: 300 MG, QOW
     Route: 058
     Dates: start: 202004
  2. VIANI [Concomitant]
     Active Substance: FLUTICASONE PROPIONATE\SALMETEROL XINAFOATE
     Indication: ASTHMA
     Dosage: 50/500
     Route: 055
     Dates: start: 2019
  3. FLUTIDE [FLUTICASONE PROPIONATE] [Concomitant]
     Active Substance: FLUTICASONE PROPIONATE
     Indication: SINUSITIS
     Dosage: UNK UNK, BID
     Route: 045
     Dates: start: 2020

REACTIONS (5)
  - Off label use [Unknown]
  - Polyneuropathy [Unknown]
  - Leukocytosis [Unknown]
  - Lung infiltration [Unknown]
  - Cough [Unknown]

NARRATIVE: CASE EVENT DATE: 202004
